FAERS Safety Report 9097900 (Version 1)
Quarter: 2013Q1

REPORT INFORMATION
  Report Type: Spontaneous
  Country: US (occurrence: US)
  Receive Date: 20130212
  Receipt Date: 20130212
  Transmission Date: 20140127
  Serious: Yes (Other)
  Sender: FDA-Public Use
  Company Number: US-PFIZER INC-2013055530

PATIENT
  Age: 74 Year
  Sex: Female
  Weight: 90.7 kg

DRUGS (1)
  1. ADVIL COLD AND SINUS [Suspect]
     Dosage: 60 MG, 3X/DAY
     Route: 048
     Dates: start: 20130206, end: 20130208

REACTIONS (1)
  - Diplopia [Not Recovered/Not Resolved]
